FAERS Safety Report 16483789 (Version 1)
Quarter: 2019Q2

REPORT INFORMATION
  Report Type: Report from Study
  Country: US (occurrence: US)
  Receive Date: 20190627
  Receipt Date: 20190627
  Transmission Date: 20190711
  Serious: Yes (Other)
  Sender: FDA-Public Use
  Company Number: US-PFIZER INC-2019266760

PATIENT

DRUGS (5)
  1. RITUXIMAB. [Suspect]
     Active Substance: RITUXIMAB
     Indication: CHRONIC LYMPHOCYTIC LEUKAEMIA
     Dosage: 375 MG/M2, CYCLIC, (ON DAY 1 OF CYCLE 1)
     Route: 042
  2. IBRUTINIB [Suspect]
     Active Substance: IBRUTINIB
     Indication: CHRONIC LYMPHOCYTIC LEUKAEMIA
     Dosage: 420 MG, DAILY, (7-DAY LEAD-IN PERIOD)
     Route: 048
  3. CYCLOPHOSPHAMIDE. [Suspect]
     Active Substance: CYCLOPHOSPHAMIDE
     Indication: CHRONIC LYMPHOCYTIC LEUKAEMIA
     Dosage: 250 MG/M2, CYCLIC, (ON DAY 1-3, 28-DAY CYCLES)
     Route: 042
  4. IBRUTINIB [Suspect]
     Active Substance: IBRUTINIB
     Dosage: 420 MG, DAILY, (CONTINUOUS, FOR 28-DAY CYCLES)
     Route: 048
  5. FLUDARABINE PHOSPHATE. [Suspect]
     Active Substance: FLUDARABINE PHOSPHATE
     Indication: CHRONIC LYMPHOCYTIC LEUKAEMIA
     Dosage: 25 MG/M2, CYCLIC, (ON DAYS 1-3, 28-DAY CYCLES)
     Route: 042

REACTIONS (1)
  - Transaminases increased [Unknown]
